FAERS Safety Report 21659963 (Version 1)
Quarter: 2022Q4

REPORT INFORMATION
  Report Type: Report from Study
  Country: US (occurrence: US)
  Receive Date: 20221130
  Receipt Date: 20221130
  Transmission Date: 20230112
  Serious: No
  Sender: FDA-Public Use
  Company Number: US-ABBVIE-4184955

PATIENT
  Sex: Female

DRUGS (4)
  1. HUMIRA [Suspect]
     Active Substance: ADALIMUMAB
     Indication: Crohn^s disease
     Route: 058
  2. Pfizer/BioNTech [Concomitant]
     Indication: COVID-19 immunisation
     Dosage: ONE IN ONCE?2ND DOSE
     Route: 030
     Dates: start: 20210328, end: 20210328
  3. Pfizer/BioNTech [Concomitant]
     Indication: COVID-19 immunisation
     Dosage: ONE IN ONCE?3RD DOSE?BOOSTER DOSE
     Route: 030
     Dates: start: 20211210, end: 20211210
  4. Pfizer/BioNTech [Concomitant]
     Indication: COVID-19 immunisation
     Dosage: ONE IN ONCE?1ST DOSE
     Route: 030
     Dates: start: 20210303, end: 20210303

REACTIONS (5)
  - COVID-19 [Not Recovered/Not Resolved]
  - Sinusitis [Not Recovered/Not Resolved]
  - Facial pain [Unknown]
  - Pain [Unknown]
  - Eye pain [Unknown]
